FAERS Safety Report 12273569 (Version 1)
Quarter: 2016Q2

REPORT INFORMATION
  Report Type: Spontaneous
  Country: IT (occurrence: IT)
  Receive Date: 20160415
  Receipt Date: 20160415
  Transmission Date: 20160815
  Serious: Yes (Hospitalization)
  Sender: FDA-Public Use
  Company Number: IT-TEVA-651278ACC

PATIENT
  Age: 85 Year
  Sex: Female

DRUGS (4)
  1. TRITTICO - 100 MG COMPRESSE RIVESTITE CON FILM [Concomitant]
     Indication: PRODUCT USED FOR UNKNOWN INDICATION
     Dosage: 1 DF
     Route: 048
  2. ATORVASTATIN CALCIUM TRIHYDRATE [Concomitant]
     Active Substance: ATORVASTATIN CALCIUM
     Indication: PRODUCT USED FOR UNKNOWN INDICATION
     Dosage: 20 MG
     Route: 048
  3. METFORMINA TEVA - COMPRESSE RIVESTITE - TEVA ITALIA S.R.L. [Suspect]
     Active Substance: METFORMIN HYDROCHLORIDE
     Indication: DIABETES MELLITUS
     Dosage: 2 DOSAGE FORMS DAILY;
     Route: 048
     Dates: start: 20150101, end: 20160316
  4. CARDIRENE - 160 MG POLVERE PER SOLUZIONE ORALE - SANOFI S.P.A. [Concomitant]
     Active Substance: ASPIRIN DL-LYSINE
     Indication: PRODUCT USED FOR UNKNOWN INDICATION
     Dosage: 160 MG
     Route: 048

REACTIONS (7)
  - Lactic acidosis [Recovering/Resolving]
  - Head injury [None]
  - Dehydration [None]
  - Syncope [None]
  - Intracranial haematoma [None]
  - Vomiting [Recovering/Resolving]
  - Dyspepsia [Recovering/Resolving]

NARRATIVE: CASE EVENT DATE: 20160316
